FAERS Safety Report 11799311 (Version 1)
Quarter: 2015Q4

REPORT INFORMATION
  Report Type: Spontaneous
  Country: US (occurrence: US)
  Receive Date: 20151203
  Receipt Date: 20151203
  Transmission Date: 20160305
  Serious: No
  Sender: FDA-Public Use
  Company Number: US-009507513-1512USA000977

PATIENT
  Weight: 79.37 kg

DRUGS (1)
  1. IMPLANON [Suspect]
     Active Substance: ETONOGESTREL
     Dosage: UNKNOWN
     Route: 059
     Dates: start: 20110328

REACTIONS (3)
  - Incorrect drug administration duration [Unknown]
  - Medical device complication [Unknown]
  - No adverse event [Unknown]

NARRATIVE: CASE EVENT DATE: 20140329
